FAERS Safety Report 4462987-0 (Version None)
Quarter: 2004Q3

REPORT INFORMATION
  Report Type: 
  Country: None (occurrence: None)
  Receive Date: 20040930
  Receipt Date: 20040903
  Transmission Date: 20050211
  Serious: Yes (Life-Threatening)
  Sender: FDA-Public Use
  Company Number: 200412840JP

PATIENT
  Age: 85 Year
  Sex: Male
  Weight: 48 kg

DRUGS (7)
  1. KETEK [Suspect]
     Indication: PNEUMONIA
     Route: 048
     Dates: start: 20040802, end: 20040803
  2. ZITHROMAX [Suspect]
     Indication: PNEUMONIA
     Dates: start: 20040730, end: 20040801
  3. LEUPROLIDE ACETATE [Concomitant]
  4. ATARAX [Concomitant]
  5. GASTER [Concomitant]
  6. LENDORMIN [Concomitant]
  7. LAXOBERON [Concomitant]

REACTIONS (12)
  - APNOEA [None]
  - BLOOD POTASSIUM INCREASED [None]
  - HAEMOGLOBIN DECREASED [None]
  - HEPATITIS FULMINANT [None]
  - LOSS OF CONSCIOUSNESS [None]
  - MULTI-ORGAN FAILURE [None]
  - MYOCARDIAL ISCHAEMIA [None]
  - PERIPHERAL NERVE OPERATION [None]
  - PLEURAL EFFUSION [None]
  - RED BLOOD CELL COUNT DECREASED [None]
  - RENAL FAILURE [None]
  - RESPIRATION ABNORMAL [None]
